FAERS Safety Report 14579293 (Version 1)
Quarter: 2018Q1

REPORT INFORMATION
  Report Type: Spontaneous
  Country: US (occurrence: US)
  Receive Date: 20180227
  Receipt Date: 20180227
  Transmission Date: 20180509
  Serious: No
  Sender: FDA-Public Use
  Company Number: US-BIOGEN-2015BI001761

PATIENT
  Age: 58 Year
  Sex: Female

DRUGS (3)
  1. PLEGRIDY [Suspect]
     Active Substance: PEGINTERFERON BETA-1A
     Indication: MULTIPLE SCLEROSIS
     Route: 058
     Dates: start: 20141229
  2. PLEGRIDY [Suspect]
     Active Substance: PEGINTERFERON BETA-1A
     Route: 058
     Dates: start: 20150115
  3. PLEGRIDY [Suspect]
     Active Substance: PEGINTERFERON BETA-1A
     Route: 058
     Dates: start: 20141230

REACTIONS (12)
  - Injection site pain [Recovered/Resolved with Sequelae]
  - Fat tissue increased [Unknown]
  - Feeling hot [Recovered/Resolved]
  - Device malfunction [Unknown]
  - Injection site bruising [Recovered/Resolved with Sequelae]
  - Musculoskeletal stiffness [Recovered/Resolved]
  - Scar [Unknown]
  - Underdose [Recovered/Resolved]
  - Injection site reaction [Recovered/Resolved with Sequelae]
  - Injection site erythema [Recovered/Resolved with Sequelae]
  - Visual impairment [Recovered/Resolved]
  - Headache [Recovered/Resolved with Sequelae]

NARRATIVE: CASE EVENT DATE: 20141229
